FAERS Safety Report 7655339-3 (Version None)
Quarter: 2011Q3

REPORT INFORMATION
  Report Type: 
  Country: None (occurrence: None)
  Receive Date: 20110729
  Receipt Date: 20110719
  Transmission Date: 20111222
  Serious: Yes (Hospitalization, Other)
  Sender: FDA-Public Use
  Company Number: 018560

PATIENT
  Sex: Male

DRUGS (1)
  1. MACUGEN [Suspect]
     Indication: AGE-RELATED MACULAR DEGENERATION
     Dosage: 0.3 MG EVERY 6 WEEKS, INTRAOCULAR
     Route: 031
     Dates: start: 20110701, end: 20110701

REACTIONS (1)
  - ENDOPHTHALMITIS [None]
